FAERS Safety Report 7554418-9 (Version None)
Quarter: 2011Q2

REPORT INFORMATION
  Report Type: 
  Country: None (occurrence: None)
  Receive Date: 20110617
  Receipt Date: 20110527
  Transmission Date: 20111010
  Serious: Yes (Hospitalization)
  Sender: FDA-Public Use
  Company Number: A0833961A

PATIENT
  Age: 44 Year
  Sex: Male

DRUGS (20)
  1. AMANTADINE HCL [Concomitant]
  2. GLUCOPHAGE [Concomitant]
  3. METOPROLOL TARTRATE [Concomitant]
  4. FLONASE [Concomitant]
  5. MOBIC [Concomitant]
  6. MINIPRESS [Concomitant]
  7. SINGULAIR [Concomitant]
  8. PAXIL [Concomitant]
  9. METFORMIN HCL [Concomitant]
  10. ASPIRIN [Concomitant]
  11. NEURONTIN [Concomitant]
  12. CLARITIN [Concomitant]
  13. BUSPAR [Concomitant]
  14. TEMAZEPAM [Concomitant]
  15. AVANDIA [Suspect]
     Dosage: 4MG TWICE PER DAY
     Route: 048
     Dates: start: 20020501, end: 20070501
  16. CARBAMAZEPINE [Concomitant]
  17. ATIVAN [Concomitant]
  18. LORCET-HD [Concomitant]
  19. LASIX [Concomitant]
  20. ADVICOR [Concomitant]

REACTIONS (3)
  - MYOCARDIAL INFARCTION [None]
  - CARDIOMYOPATHY [None]
  - CORONARY ARTERY DISEASE [None]
